FAERS Safety Report 4272224-8 (Version None)
Quarter: 2004Q1

REPORT INFORMATION
  Report Type: 
  Country: None (occurrence: None)
  Receive Date: 20040115
  Receipt Date: 20031208
  Transmission Date: 20041129
  Serious: Yes (Death, Life-Threatening, Hospitalization)
  Sender: FDA-Public Use
  Company Number: JP-BRISTOL-MYERS SQUIBB COMPANY-12451555

PATIENT
  Age: 59 Year
  Sex: Female

DRUGS (13)
  1. TAXOL [Suspect]
     Indication: OVARIAN CANCER
     Route: 042
     Dates: start: 20031126, end: 20031126
  2. PARAPLATIN [Suspect]
     Indication: OVARIAN CANCER
     Route: 042
     Dates: start: 20031126, end: 20031126
  3. OMEPRAZOLE [Concomitant]
     Route: 048
     Dates: start: 20031113, end: 20031201
  4. GASMOTIN [Concomitant]
     Route: 048
     Dates: start: 20031113, end: 20031201
  5. ULCERLMIN [Concomitant]
     Route: 048
     Dates: start: 20031113, end: 20031201
  6. MERCAZOLE [Concomitant]
     Route: 048
     Dates: start: 20030728, end: 20031201
  7. NORVASC [Concomitant]
     Route: 048
     Dates: start: 20030728, end: 20031201
  8. BASEN [Concomitant]
     Route: 048
     Dates: start: 20030728, end: 20031201
  9. CYANOCOBALAMIN [Concomitant]
     Route: 048
     Dates: start: 20031128, end: 20031201
  10. CHINESE HERBS [Concomitant]
     Route: 048
     Dates: start: 20031128, end: 20031201
  11. MAGNESIUM OXIDE [Concomitant]
     Route: 048
     Dates: start: 20031130, end: 20031130
  12. LECICARBON [Concomitant]
     Dates: start: 20031130, end: 20031130
  13. DIAZEPAM [Concomitant]
     Route: 048
     Dates: start: 20030831, end: 20031201

REACTIONS (9)
  - ATRIAL FIBRILLATION [None]
  - BLOOD PRESSURE DECREASED [None]
  - CARDIAC ARREST [None]
  - CONSTIPATION [None]
  - DISSEMINATED INTRAVASCULAR COAGULATION [None]
  - GASTROINTESTINAL NECROSIS [None]
  - HAEMORRHAGE [None]
  - MULTI-ORGAN FAILURE [None]
  - URINE OUTPUT DECREASED [None]
